FAERS Safety Report 20254338 (Version 3)
Quarter: 2022Q1

REPORT INFORMATION
  Report Type: Spontaneous
  Country: CA (occurrence: CA)
  Receive Date: 20211230
  Receipt Date: 20220203
  Transmission Date: 20220423
  Serious: Yes (Other)
  Sender: FDA-Public Use
  Company Number: CA-CELLTRION INC.-2021CA017701

PATIENT

DRUGS (6)
  1. INFLECTRA [Suspect]
     Active Substance: INFLIXIMAB-DYYB
     Indication: Crohn^s disease
     Dosage: 300 MG 0, 2, 6 THEN EVERY 8 WEEKS
     Route: 042
     Dates: start: 20171110, end: 20180216
  2. INFLECTRA [Suspect]
     Active Substance: INFLIXIMAB-DYYB
     Dosage: 10 MG/KG, 0, 2, 6 THEN EVERY 4 WEEKS
     Route: 042
     Dates: start: 20211130
  3. INFLECTRA [Suspect]
     Active Substance: INFLIXIMAB-DYYB
     Dosage: 10 MG/KG, 0, 2, 6 THEN EVERY 4 WEEKS
     Route: 042
     Dates: start: 20211213
  4. RABEPRAZOLE [Concomitant]
     Active Substance: RABEPRAZOLE
     Dosage: 1 DF (DOSAGE NOT AVAILABLE )
     Route: 065
  5. SOLU-MEDROL [Concomitant]
     Active Substance: METHYLPREDNISOLONE SODIUM SUCCINATE
     Dosage: 100 MG
     Route: 042
     Dates: start: 20211213
  6. VITAMIN D3 [Concomitant]
     Active Substance: CHOLECALCIFEROL
     Dosage: 1 DF, DOSAGE NOT AVAILABLE
     Route: 065

REACTIONS (10)
  - Throat tightness [Recovering/Resolving]
  - Drug ineffective [Unknown]
  - Pharyngeal paraesthesia [Recovering/Resolving]
  - Dysphonia [Recovering/Resolving]
  - Pain [Recovering/Resolving]
  - Pharyngeal swelling [Unknown]
  - Arthralgia [Unknown]
  - Infusion related reaction [Unknown]
  - Product administration error [Unknown]
  - Off label use [Unknown]

NARRATIVE: CASE EVENT DATE: 20211213
